FAERS Safety Report 8574983-2 (Version None)
Quarter: 2012Q2

REPORT INFORMATION
  Report Type: 
  Country: None (occurrence: None)
  Receive Date: 20120423
  Receipt Date: 20091029
  Transmission Date: 20120825
  Serious: Yes (Other)
  Sender: FDA-Public Use
  Company Number: PHEH2009US14887

PATIENT
  Age: 80 Year
  Sex: Female

DRUGS (5)
  1. GARLIC (ALLIUM SATIVUM) [Concomitant]
  2. ASPIRIN [Concomitant]
  3. MULTIVITAMIN [Concomitant]
  4. EXJADE [Suspect]
     Indication: MYELODYSPLASTIC SYNDROME
     Dosage: 1000 MG, QD, ORAL
     Route: 048
     Dates: start: 20090903, end: 20091003
  5. EXJADE [Suspect]
     Indication: IRON OVERLOAD
     Dosage: 1000 MG, QD, ORAL
     Route: 048
     Dates: start: 20090903, end: 20091003

REACTIONS (1)
  - NEOPLASM MALIGNANT [None]
